FAERS Safety Report 10660884 (Version 1)
Quarter: 2014Q4

REPORT INFORMATION
  Report Type: Other
  Country: DE (occurrence: DE)
  Receive Date: 20141218
  Receipt Date: 20141218
  Transmission Date: 20150529
  Serious: Yes (Other)
  Sender: FDA-Public Use
  Company Number: DE-SUN PHARMACEUTICAL INDUSTRIES LTD-2014SUN02838

PATIENT
  Age: 1 Day
  Sex: Male
  Weight: 3.2 kg

DRUGS (2)
  1. VENLAFAXINE HYDROCHLORIDE 37.5 MG TABLET [Suspect]
     Active Substance: VENLAFAXINE HYDROCHLORIDE
     Indication: DEPRESSION
     Dosage: 300 MG, QD
     Route: 064
     Dates: start: 20140113
  2. VENLAFAXINE HYDROCHLORIDE 37.5 MG TABLET [Suspect]
     Active Substance: VENLAFAXINE HYDROCHLORIDE
     Dosage: 75 MG, QD (THIRD TRIMESTER)
     Route: 064
     Dates: end: 20141003

REACTIONS (6)
  - Myoclonus [Recovered/Resolved]
  - Hyperbilirubinaemia neonatal [Recovered/Resolved]
  - Respiratory disorder neonatal [Recovered/Resolved]
  - Neonatal asphyxia [Recovered/Resolved]
  - Agitation neonatal [Recovered/Resolved]
  - Foetal exposure during pregnancy [Unknown]

NARRATIVE: CASE EVENT DATE: 20141003
